FAERS Safety Report 22156814 (Version 1)
Quarter: 2023Q1

REPORT INFORMATION
  Report Type: Spontaneous
  Country: US (occurrence: US)
  Receive Date: 20230330
  Receipt Date: 20230330
  Transmission Date: 20230418
  Serious: Yes (Hospitalization)
  Sender: FDA-Public Use
  Company Number: US-PFIZER INC-202300128844

PATIENT
  Age: 59 Year
  Sex: Female

DRUGS (1)
  1. INLYTA [Suspect]
     Active Substance: AXITINIB
     Dosage: 5 MG, 2X/DAY
     Route: 048
     Dates: end: 20230227

REACTIONS (4)
  - Eye disorder [Recovering/Resolving]
  - Liver disorder [Recovering/Resolving]
  - Cardiac disorder [Recovering/Resolving]
  - Muscle disorder [Recovering/Resolving]
